FAERS Safety Report 7555987-5 (Version None)
Quarter: 2011Q2

REPORT INFORMATION
  Report Type: 
  Country: None (occurrence: None)
  Receive Date: 20110620
  Receipt Date: 20110613
  Transmission Date: 20111010
  Serious: Yes (Hospitalization)
  Sender: FDA-Public Use
  Company Number: BR-BRISTOL-MYERS SQUIBB COMPANY-14941298

PATIENT
  Age: 60 Year
  Sex: Male

DRUGS (8)
  1. MONOCORDIL [Concomitant]
     Dosage: 2 CAP/DAY
     Dates: start: 20100103
  2. OMEPRAZOLE [Concomitant]
     Dates: start: 20091001
  3. WARFARIN SODIUM [Suspect]
     Indication: THROMBOSIS PROPHYLAXIS
     Dosage: INTRRUPTED ON 03JAN2010.
     Route: 048
     Dates: start: 20091105
  4. PLACEBO [Suspect]
     Indication: THROMBOSIS PROPHYLAXIS
     Dosage: INTRRUPTED ON 03JAN2010.
     Route: 048
     Dates: start: 20091105
  5. SIMVASTATIN [Concomitant]
     Dates: start: 20091001
  6. FUROSEMIDE [Concomitant]
     Dates: start: 20091001
  7. ESPIRONOLACTONA [Concomitant]
     Dates: start: 20091001
  8. DIGOXIN [Concomitant]
     Dates: start: 20091001

REACTIONS (1)
  - GASTRITIS EROSIVE [None]
